FAERS Safety Report 17507596 (Version 1)
Quarter: 2020Q1

REPORT INFORMATION
  Report Type: Spontaneous
  Country: US (occurrence: US)
  Receive Date: 20200306
  Receipt Date: 20200306
  Transmission Date: 20200409
  Serious: No
  Sender: FDA-Public Use
  Company Number: US-ASTRAZENECA-2020SE29520

PATIENT
  Age: 101 Day
  Sex: Female
  Weight: 4.3 kg

DRUGS (5)
  1. POLY-VI-SOL [Concomitant]
     Active Substance: VITAMINS
  2. TAMIFLU [Concomitant]
     Active Substance: OSELTAMIVIR PHOSPHATE
  3. SYNAGIS [Suspect]
     Active Substance: PALIVIZUMAB
     Indication: SMALL FOR DATES BABY
     Route: 030
     Dates: start: 20200122
  4. SALINE NASAL SPRAY [Concomitant]
     Active Substance: SODIUM CHLORIDE
  5. PINEPHRINE HCL [Concomitant]

REACTIONS (3)
  - Productive cough [Unknown]
  - Influenza [Recovered/Resolved]
  - Feeding disorder [Unknown]

NARRATIVE: CASE EVENT DATE: 20200222
